FAERS Safety Report 14261589 (Version 1)
Quarter: 2017Q4

REPORT INFORMATION
  Report Type: Spontaneous
  Country: US (occurrence: US)
  Receive Date: 20171201
  Receipt Date: 20171201
  Transmission Date: 20180321
  Serious: Yes (Hospitalization)
  Sender: FDA-Public Use
  Company Number: None

PATIENT
  Sex: Female
  Weight: 58.5 kg

DRUGS (1)
  1. NEXPLANON [Suspect]
     Active Substance: ETONOGESTREL
     Indication: CONTRACEPTION
     Dosage: ?          OTHER ROUTE:IMPLANTED IN ARM?

REACTIONS (5)
  - Pregnancy [None]
  - Internal haemorrhage [None]
  - Ectopic pregnancy [None]
  - Maternal exposure before pregnancy [None]
  - Haemorrhage in pregnancy [None]

NARRATIVE: CASE EVENT DATE: 20171121
